FAERS Safety Report 11145656 (Version 2)
Quarter: 2015Q3

REPORT INFORMATION
  Report Type: Report from Study
  Country: SI (occurrence: SI)
  Receive Date: 20150528
  Receipt Date: 20150703
  Transmission Date: 20151125
  Serious: Yes (Other)
  Sender: FDA-Public Use
  Company Number: SI-009507513-1505SVN001317

PATIENT
  Age: 80 Year
  Sex: Female
  Weight: 75 kg

DRUGS (10)
  1. FIDAXOMICIN [Suspect]
     Active Substance: FIDAXOMICIN
     Dosage: 200 MG, QOD
     Route: 048
     Dates: start: 201504, end: 20150414
  2. CARVEDILOL. [Concomitant]
     Active Substance: CARVEDILOL
     Dosage: 12.5 MG, QD
  3. DIGOXIN. [Concomitant]
     Active Substance: DIGOXIN
     Dosage: 1 DF, QD
  4. ACETAMINOPHEN. [Concomitant]
     Active Substance: ACETAMINOPHEN
     Dosage: 1 TABLET TWO TIMES
     Route: 048
  5. FUROSEMIDE. [Concomitant]
     Active Substance: FUROSEMIDE
     Dosage: 1 DF, QD
     Route: 048
  6. WARFARIN SODIUM CLATHRATE [Concomitant]
     Dosage: 1.5 G, UNK
  7. HYDROCHLOROTHIAZIDE (+) VALSARTAN [Concomitant]
     Active Substance: HYDROCHLOROTHIAZIDE\VALSARTAN
     Dosage: 80/12.5 MH DAILY
  8. INSULIN-HM MIX [Concomitant]
     Dosage: DOSE 2516IE+14 IE+ 20 IE
  9. FIDAXOMICIN [Suspect]
     Active Substance: FIDAXOMICIN
     Indication: CLOSTRIDIUM DIFFICILE COLITIS
     Dosage: 200 MG, BID
     Route: 048
     Dates: start: 20150410, end: 20150414
  10. LACIDIPINE [Concomitant]
     Active Substance: LACIDIPINE
     Dosage: 4 MG, QD

REACTIONS (2)
  - Hepatic enzyme abnormal [Recovering/Resolving]
  - Pneumonia [Recovered/Resolved]

NARRATIVE: CASE EVENT DATE: 20150416
